FAERS Safety Report 9612059 (Version 3)
Quarter: 2014Q1

REPORT INFORMATION
  Report Type: Spontaneous
  Country: US (occurrence: US)
  Receive Date: 20131010
  Receipt Date: 20140113
  Transmission Date: 20141002
  Serious: No
  Sender: FDA-Public Use
  Company Number: US-ASTELLAS-2013US009012

PATIENT
  Age: 78 Year
  Sex: Female
  Weight: 75 kg

DRUGS (11)
  1. MYRBETRIQ [Suspect]
     Indication: URGE INCONTINENCE
     Dosage: 50 MG, UID/QD
     Route: 048
     Dates: start: 201307
  2. MYRBETRIQ [Suspect]
     Indication: POLLAKIURIA
  3. MYRBETRIQ [Suspect]
     Indication: HYPERTONIC BLADDER
  4. VESICARE [Concomitant]
     Indication: URGE INCONTINENCE
     Dosage: 10 MG, UNKNOWN/D
     Route: 065
     Dates: end: 201307
  5. VESICARE [Concomitant]
     Indication: POLLAKIURIA
  6. LEVOTHYROXINE [Concomitant]
     Indication: THYROID DISORDER
     Dosage: 100 MG, UID/QD
     Route: 048
  7. METFORMIN [Concomitant]
     Indication: BLOOD GLUCOSE ABNORMAL
     Dosage: 500 MG, BID
     Route: 048
  8. ASPIRIN [Concomitant]
     Indication: CARDIAC DISORDER
     Dosage: 81 MG, UID/QD
     Route: 048
  9. VASOMOTAL [Concomitant]
     Indication: MENIERE^S DISEASE
     Dosage: 60 MG, UID/QD
     Route: 048
  10. GLUCOSAMINE [Concomitant]
     Indication: ARTHRITIS
     Dosage: UNK
     Route: 065
  11. FISH OIL [Concomitant]
     Indication: BLOOD CHOLESTEROL
     Dosage: UNK
     Route: 065

REACTIONS (1)
  - Intentional drug misuse [Unknown]
